FAERS Safety Report 7457881-7 (Version None)
Quarter: 2011Q2

REPORT INFORMATION
  Report Type: 
  Country: None (occurrence: None)
  Receive Date: 20110504
  Receipt Date: 20110427
  Transmission Date: 20111010
  Serious: Yes (Disabling, Other)
  Sender: FDA-Public Use
  Company Number: PHHO2008GB08161

PATIENT
  Weight: 86 kg

DRUGS (5)
  1. ZOLEDRONATE [Suspect]
     Indication: METASTASES TO BONE
     Dosage: 4 MG, UNK
     Route: 042
     Dates: start: 20050720
  2. DOXYCYCLINE [Concomitant]
  3. ANTIBIOTICS [Concomitant]
  4. VITAMIN D [Concomitant]
     Dosage: UNK
     Dates: start: 20050720
  5. CALCIUM [Concomitant]
     Dosage: UNK
     Dates: start: 20050720

REACTIONS (3)
  - OSTEONECROSIS OF JAW [None]
  - IMPAIRED HEALING [None]
  - PAIN [None]
